FAERS Safety Report 13717435 (Version 1)
Quarter: 2017Q3

REPORT INFORMATION
  Report Type: Spontaneous
  Country: DE (occurrence: DE)
  Receive Date: 20170705
  Receipt Date: 20170705
  Transmission Date: 20171127
  Serious: Yes (Life-Threatening, Other)
  Sender: FDA-Public Use
  Company Number: DE-GLAXOSMITHKLINE-DE2017102209

PATIENT
  Age: 55 Year
  Sex: Female

DRUGS (5)
  1. ATROPINSULFAT [Concomitant]
     Dosage: UNK
     Route: 008
  2. METRONIDAZOL [Concomitant]
     Active Substance: METRONIDAZOLE
     Dosage: UNK
     Route: 042
  3. DORMICUM (MIDAZOLAM MALEATE) [Concomitant]
     Active Substance: MIDAZOLAM MALEATE
     Dosage: UNK
     Route: 048
  4. CEFUROXIM [Suspect]
     Active Substance: CEFUROXIME
     Indication: PRODUCT USED FOR UNKNOWN INDICATION
     Dosage: UNK
     Route: 042
  5. XYLOCAIN 1% (LIDOCAINE) [Concomitant]
     Dosage: UNK
     Route: 008

REACTIONS (2)
  - Cardiac arrest [Recovered/Resolved]
  - Anaphylactic reaction [Recovered/Resolved]
